FAERS Safety Report 13671404 (Version 1)
Quarter: 2017Q2

REPORT INFORMATION
  Report Type: Spontaneous
  Country: US (occurrence: US)
  Receive Date: 20170620
  Receipt Date: 20170620
  Transmission Date: 20170830
  Serious: No
  Sender: FDA-Public Use
  Company Number: US-ROCHE-778000

PATIENT
  Sex: Female

DRUGS (1)
  1. XELODA [Suspect]
     Active Substance: CAPECITABINE
     Indication: BREAST CANCER METASTATIC
     Dosage: TWO WEEKS ON WITH ONE WEEK OFF, 4 CYCLES
     Route: 048

REACTIONS (3)
  - No adverse event [Unknown]
  - Medication error [Unknown]
  - Product quality issue [Unknown]
